FAERS Safety Report 8017413-1 (Version None)
Quarter: 2012Q1

REPORT INFORMATION
  Report Type: 
  Country: None (occurrence: None)
  Receive Date: 20120102
  Receipt Date: 20070528
  Transmission Date: 20120608
  Serious: Yes (Other)
  Sender: FDA-Public Use
  Company Number: JP-SANTEN INC.-INC-11-000224

PATIENT
  Sex: Female

DRUGS (4)
  1. LEVOFLOXACIN [Suspect]
     Indication: INFECTION PROPHYLAXIS
     Route: 047
     Dates: start: 20070524, end: 20070524
  2. INTAL [Concomitant]
  3. FLUOROMETHOLONE [Concomitant]
  4. PIRENOXINE [Concomitant]

REACTIONS (4)
  - COUGH [None]
  - ANAPHYLACTIC SHOCK [None]
  - HEADACHE [None]
  - BLOOD PRESSURE INCREASED [None]
